FAERS Safety Report 23688682 (Version 1)
Quarter: 2024Q1

REPORT INFORMATION
  Report Type: Spontaneous
  Country: JP (occurrence: JP)
  Receive Date: 20240329
  Receipt Date: 20240329
  Transmission Date: 20240410
  Serious: Yes (Life-Threatening, Hospitalization)
  Sender: FDA-Public Use
  Company Number: JP-Eisai-202315820_LEN-EC_P_1

PATIENT
  Age: 65 Year
  Sex: Female

DRUGS (2)
  1. LENVIMA [Suspect]
     Active Substance: LENVATINIB
     Indication: Uterine cancer
     Route: 048
     Dates: start: 20240319, end: 20240326
  2. KEYTRUDA [Concomitant]
     Active Substance: PEMBROLIZUMAB
     Indication: Uterine cancer
     Route: 041
     Dates: start: 20240319

REACTIONS (1)
  - Small intestinal perforation [Unknown]

NARRATIVE: CASE EVENT DATE: 20240301
